FAERS Safety Report 20802403 (Version 1)
Quarter: 2022Q2

REPORT INFORMATION
  Report Type: Spontaneous
  Country: US (occurrence: None)
  Receive Date: 20220506
  Receipt Date: 20220506
  Transmission Date: 20220721
  Serious: Yes (Death)
  Sender: FDA-Public Use
  Company Number: None

PATIENT
  Age: 60 Year
  Sex: Male
  Weight: 124.65 kg

DRUGS (17)
  1. LAMOTRIGINE [Suspect]
     Active Substance: LAMOTRIGINE
     Indication: Bipolar I disorder
     Dosage: FREQUENCY : TWICE A DAY;?
     Route: 048
     Dates: start: 20220404, end: 20220416
  2. Ascorbic acid 500 mg [Concomitant]
  3. Carbidopa-levodopa 25-100 mg [Concomitant]
     Dates: start: 20210831
  4. CLONAZEPAM [Concomitant]
     Active Substance: CLONAZEPAM
     Dates: start: 20180223
  5. ESCITALOPRAM [Concomitant]
     Active Substance: ESCITALOPRAM OXALATE
     Dates: start: 20150814
  6. Fish Oil 1000 mg [Concomitant]
  7. FUROSEMIDE [Concomitant]
     Active Substance: FUROSEMIDE
     Dates: start: 20190712
  8. GABAPENTIN [Concomitant]
     Active Substance: GABAPENTIN
     Dates: start: 20150814
  9. Levothyroxine 175 mcg [Concomitant]
     Dates: start: 20170721
  10. METOPROLOL SUCCINATE [Concomitant]
     Active Substance: METOPROLOL SUCCINATE
     Dates: start: 20210921
  11. Mirabegron 25 mg [Concomitant]
     Dates: start: 20190418
  12. OMEPRAZOLE [Concomitant]
     Active Substance: OMEPRAZOLE
     Dates: start: 20191009
  13. Potassium chloride 20 mEq [Concomitant]
     Dates: start: 20190712
  14. QUETIAPINE [Concomitant]
     Active Substance: QUETIAPINE
     Dates: start: 20180824
  15. QUETIAPINE [Concomitant]
     Active Substance: QUETIAPINE
     Dates: start: 20171122
  16. TAMSULOSIN [Concomitant]
     Active Substance: TAMSULOSIN
     Dates: start: 20150814
  17. TRAMADOL [Concomitant]
     Active Substance: TRAMADOL
     Dates: start: 20170721

REACTIONS (2)
  - Sudden death [None]
  - Cardiac arrest [None]

NARRATIVE: CASE EVENT DATE: 20220416
